FAERS Safety Report 7271030-X (Version None)
Quarter: 2011Q1

REPORT INFORMATION
  Report Type: 
  Country: None (occurrence: None)
  Receive Date: 20110202
  Receipt Date: 20110128
  Transmission Date: 20110831
  Serious: Yes (Hospitalization, Other)
  Sender: FDA-Public Use
  Company Number: CA-PFIZER INC-2011011039

PATIENT
  Age: 61 Year
  Sex: Female

DRUGS (1)
  1. SUTENT [Suspect]
     Indication: METASTATIC RENAL CELL CARCINOMA
     Dosage: 37.5 MG / 12.5 MG ALTERNATING DOSES
     Route: 048
     Dates: end: 20101201

REACTIONS (4)
  - HEART INJURY [None]
  - HAEMORRHAGE [None]
  - WRIST FRACTURE [None]
  - FALL [None]
